FAERS Safety Report 8327229-4 (Version None)
Quarter: 2012Q2

REPORT INFORMATION
  Report Type: 
  Country: None (occurrence: None)
  Receive Date: 20120501
  Receipt Date: 20120420
  Transmission Date: 20120825
  Serious: Yes (Hospitalization, Other)
  Sender: FDA-Public Use
  Company Number: AU-BAXTER-2012BAX003989

PATIENT
  Sex: Female

DRUGS (3)
  1. CYCLOPHOSPHAMIDE [Suspect]
     Indication: BREAST CANCER
  2. DOXORUBICIN HCL [Suspect]
     Indication: BREAST CANCER
  3. DOCETAXEL [Suspect]
     Indication: BREAST CANCER

REACTIONS (2)
  - NEUTROPENIC SEPSIS [None]
  - FEBRILE NEUTROPENIA [None]
